FAERS Safety Report 9859526 (Version 2)
Quarter: 2014Q4

REPORT INFORMATION
  Report Type: Spontaneous
  Country: US (occurrence: US)
  Receive Date: 20140131
  Receipt Date: 20141013
  Transmission Date: 20150529
  Serious: Yes (Other)
  Sender: FDA-Public Use
  Company Number: US-009507513-1401USA014811

PATIENT
  Sex: Female
  Weight: 63.49 kg

DRUGS (1)
  1. NUVARING [Suspect]
     Active Substance: ETHINYL ESTRADIOL\ETONOGESTREL
     Indication: PRODUCT USED FOR UNKNOWN INDICATION
     Dosage: UNK
     Route: 067

REACTIONS (11)
  - Chest pain [Unknown]
  - Anxiety [Unknown]
  - Budd-Chiari syndrome [Unknown]
  - Splenic vein thrombosis [Unknown]
  - Portal vein cavernous transformation [Unknown]
  - Mesenteric vein thrombosis [Unknown]
  - Mammoplasty [Unknown]
  - Iron deficiency anaemia [Unknown]
  - Portal vein thrombosis [Unknown]
  - Dyspnoea [Unknown]
  - Migraine [Unknown]

NARRATIVE: CASE EVENT DATE: 2010
